FAERS Safety Report 13255851 (Version 1)
Quarter: 2017Q1

REPORT INFORMATION
  Report Type: Spontaneous
  Country: US (occurrence: US)
  Receive Date: 20170219
  Receipt Date: 20170219
  Transmission Date: 20170428
  Serious: Yes (Other)
  Sender: FDA-Public Use
  Company Number: None

PATIENT
  Age: 33 Year
  Sex: Male
  Weight: 97 kg

DRUGS (1)
  1. ADALIMUMAB [Suspect]
     Active Substance: ADALIMUMAB

REACTIONS (5)
  - Urine phosphorus increased [None]
  - Blood phosphorus decreased [None]
  - Blood magnesium decreased [None]
  - Arrhythmia [None]
  - Syncope [None]

NARRATIVE: CASE EVENT DATE: 20160603
